FAERS Safety Report 5271955-0 (Version None)
Quarter: 2007Q1

REPORT INFORMATION
  Report Type: 
  Country: None (occurrence: None)
  Receive Date: 20061219
  Receipt Date: 20060919
  Transmission Date: 20070707
  Serious: Yes (Other)
  Sender: FDA-Public Use
  Company Number: US-JNJFOC-20060105323

PATIENT
  Age: 17 Year
  Sex: Female
  Weight: 50.8029 kg

DRUGS (3)
  1. ORTHO EVRA [Suspect]
     Indication: CONTRACEPTION
     Dosage: TRANSDERMAL
     Route: 062
     Dates: start: 20050628
  2. PROTEIN (PROTEIN SUPPLEMENTS) [Concomitant]
  3. FE (TEGAFUR) [Concomitant]

REACTIONS (2)
  - DIZZINESS [None]
  - THROMBOSIS [None]
